FAERS Safety Report 6010406-5 (Version None)
Quarter: 2008Q4

REPORT INFORMATION
  Report Type: 
  Country: None (occurrence: None)
  Receive Date: 20081217
  Receipt Date: 20081217
  Transmission Date: 20090506
  Serious: Yes (Disabling)
  Sender: FDA-Public Use
  Company Number: None

PATIENT
  Age: 40 Year
  Sex: Male
  Weight: 90.7194 kg

DRUGS (1)
  1. LOPRESSOR [Suspect]
     Indication: CARDIAC OPERATION
     Dosage: 25 MG X 2 A DAY
     Dates: start: 20071103

REACTIONS (1)
  - AMNESIA [None]
